FAERS Safety Report 6619066-3 (Version None)
Quarter: 2010Q1

REPORT INFORMATION
  Report Type: 
  Country: None (occurrence: None)
  Receive Date: 20100308
  Receipt Date: 20100222
  Transmission Date: 20100710
  Serious: Yes (Hospitalization)
  Sender: FDA-Public Use
  Company Number: US-CELGENEUS-163-50794-09121798

PATIENT
  Sex: Female
  Weight: 49.9 kg

DRUGS (10)
  1. VIDAZA [Suspect]
     Route: 058
     Dates: start: 20090914, end: 20090922
  2. VIDAZA [Suspect]
     Route: 058
     Dates: start: 20081216, end: 20081223
  3. NEUPOGEN [Concomitant]
     Indication: NEUTROPENIA
     Route: 058
     Dates: start: 20090514
  4. DARBEPOETIN [Concomitant]
     Route: 058
     Dates: start: 20090506
  5. ONDANSETRON [Concomitant]
     Indication: NAUSEA
     Route: 048
     Dates: start: 20090310
  6. ACYCLOVIR [Concomitant]
     Indication: DRUG USE FOR UNKNOWN INDICATION
     Route: 051
     Dates: start: 20090929
  7. ULTRAM [Concomitant]
     Indication: DRUG USE FOR UNKNOWN INDICATION
     Route: 065
     Dates: start: 20090929
  8. LYRICA [Concomitant]
     Indication: DRUG USE FOR UNKNOWN INDICATION
     Route: 065
     Dates: start: 20090929
  9. MICROZIDE [Concomitant]
     Indication: DRUG USE FOR UNKNOWN INDICATION
     Route: 065
     Dates: start: 20090929
  10. ROXICODONE [Concomitant]
     Indication: PAIN
     Route: 065
     Dates: start: 20090929

REACTIONS (4)
  - CELLULITIS [None]
  - PERIORBITAL CELLULITIS [None]
  - RASH VESICULAR [None]
  - STAPHYLOCOCCAL BACTERAEMIA [None]
